FAERS Safety Report 21063957 (Version 4)
Quarter: 2023Q1

REPORT INFORMATION
  Report Type: Report from Study
  Country: CN (occurrence: CN)
  Receive Date: 20220711
  Receipt Date: 20230302
  Transmission Date: 20230417
  Serious: Yes (Life-Threatening)
  Sender: FDA-Public Use
  Company Number: CN-ELI_LILLY_AND_COMPANY-CN202207001994

PATIENT
  Age: 73 Year
  Sex: Male

DRUGS (41)
  1. PEMETREXED [Suspect]
     Active Substance: PEMETREXED
     Indication: Non-small cell lung cancer
     Dosage: 500 MG/M2, ONCE EVERY 3 WEEKS
     Route: 042
     Dates: start: 20211214, end: 20211214
  2. PEMETREXED [Suspect]
     Active Substance: PEMETREXED
     Dosage: 500 MG/M2, ONCE EVERY 3 WEEKS
     Route: 042
     Dates: start: 20220105, end: 20220105
  3. PEMETREXED [Suspect]
     Active Substance: PEMETREXED
     Dosage: 500 MG/M2, ONCE EVERY 3 WEEKS
     Route: 042
     Dates: start: 20220126, end: 20220126
  4. PEMETREXED [Suspect]
     Active Substance: PEMETREXED
     Dosage: 500 MG/M2, ONCE EVERY 3 WEEKS
     Route: 042
     Dates: start: 20220217, end: 20220217
  5. PEMETREXED [Suspect]
     Active Substance: PEMETREXED
     Dosage: 500 MG/M2, ONCE EVERY 4 WEEKS
     Route: 042
     Dates: start: 20220310, end: 20220310
  6. PEMETREXED [Suspect]
     Active Substance: PEMETREXED
     Dosage: 500 MG/M2, ONCE EVERY 4 WEEKS
     Route: 042
     Dates: start: 20220408, end: 20220408
  7. PEMETREXED [Suspect]
     Active Substance: PEMETREXED
     Dosage: 406 MG/M2, ONCE EVRY 4 WEEKS
     Route: 042
     Dates: start: 20220512, end: 20220512
  8. PEMETREXED [Suspect]
     Active Substance: PEMETREXED
     Dosage: 406 MG/M2, ONCE EVRY 4 WEEKS
     Route: 042
     Dates: start: 20220609, end: 20220609
  9. CARBOPLATIN [Concomitant]
     Active Substance: CARBOPLATIN
     Indication: Non-small cell lung cancer
     Dosage: 5.0 AUC, EVERY 3 WEEKS
     Route: 042
     Dates: start: 20211214, end: 20211214
  10. CARBOPLATIN [Concomitant]
     Active Substance: CARBOPLATIN
     Dosage: 5.0 AUC, EVERY 3 WEEKS
     Route: 042
     Dates: start: 20220105, end: 20220105
  11. CARBOPLATIN [Concomitant]
     Active Substance: CARBOPLATIN
     Dosage: 5.0 AUC, EVERY 3 WEEKS
     Route: 042
     Dates: start: 20220126, end: 20220126
  12. CARBOPLATIN [Concomitant]
     Active Substance: CARBOPLATIN
     Dosage: 5.0 AUC, EVERY 3 WEEKS
     Route: 042
     Dates: start: 20220217, end: 20220217
  13. TREMELIMUMAB [Concomitant]
     Active Substance: TREMELIMUMAB
     Indication: Non-small cell lung cancer
     Dosage: 75 MG, EVERY 3 WEEKS
     Route: 042
     Dates: start: 20211214, end: 20211214
  14. TREMELIMUMAB [Concomitant]
     Active Substance: TREMELIMUMAB
     Dosage: 75 MG, EVERY 3 WEEKS
     Route: 042
     Dates: start: 20220105, end: 20220105
  15. TREMELIMUMAB [Concomitant]
     Active Substance: TREMELIMUMAB
     Dosage: 75 MG, EVERY 3 WEEKS
     Route: 042
     Dates: start: 20220126, end: 20220126
  16. TREMELIMUMAB [Concomitant]
     Active Substance: TREMELIMUMAB
     Dosage: 75 MG, EVERY 3 WEEKS
     Route: 042
     Dates: start: 20220217, end: 20220217
  17. TREMELIMUMAB [Concomitant]
     Active Substance: TREMELIMUMAB
     Dosage: 75 MG, EVERY 4 WEEKS
     Route: 042
     Dates: start: 20220408, end: 20220408
  18. DURVALUMAB [Concomitant]
     Active Substance: DURVALUMAB
     Indication: Non-small cell lung cancer
     Dosage: 1500 MG, EVERY THREE WEEKS
     Route: 042
     Dates: start: 20211214, end: 20211214
  19. DURVALUMAB [Concomitant]
     Active Substance: DURVALUMAB
     Dosage: 1500 MG, EVERY THREE WEEKS
     Route: 042
     Dates: start: 20220105, end: 20220105
  20. DURVALUMAB [Concomitant]
     Active Substance: DURVALUMAB
     Dosage: 1500 MG, EVERY THREE WEEKS
     Route: 042
     Dates: start: 20220126, end: 20220126
  21. DURVALUMAB [Concomitant]
     Active Substance: DURVALUMAB
     Dosage: 1500 MG, EVERY THREE WEEKS
     Route: 042
     Dates: start: 20220217, end: 20220217
  22. DURVALUMAB [Concomitant]
     Active Substance: DURVALUMAB
     Dosage: 1500 MG, EVERY FOUR WEEKS
     Route: 042
     Dates: start: 20220310, end: 20220310
  23. DURVALUMAB [Concomitant]
     Active Substance: DURVALUMAB
     Dosage: 1500 MG, EVERY FOUR WEEKS
     Route: 042
     Dates: start: 20220408, end: 20220408
  24. DURVALUMAB [Concomitant]
     Active Substance: DURVALUMAB
     Dosage: 1500 MG, EVERY FOUR WEEKS
     Route: 042
     Dates: start: 20220512, end: 20220512
  25. DURVALUMAB [Concomitant]
     Active Substance: DURVALUMAB
     Dosage: 1500 MG, EVERY FOUR WEEKS
     Route: 042
     Dates: start: 20220609, end: 20220609
  26. DURVALUMAB [Concomitant]
     Active Substance: DURVALUMAB
     Dosage: 1500 MG, EVERY FOUR WEEKS
     Route: 042
     Dates: start: 20220715, end: 20220715
  27. DURVALUMAB [Concomitant]
     Active Substance: DURVALUMAB
     Dosage: 1500 MG, EVERY FOUR WEEKS
     Route: 042
     Dates: start: 20220811, end: 20220811
  28. DURVALUMAB [Concomitant]
     Active Substance: DURVALUMAB
     Dosage: 1500 MG, EVERY FOUR WEEKS
     Route: 042
     Dates: start: 20220908, end: 20220908
  29. DURVALUMAB [Concomitant]
     Active Substance: DURVALUMAB
     Dosage: 1500 MG, EVERY FOUR WEEKS
     Route: 042
     Dates: start: 20221008, end: 20221008
  30. DURVALUMAB [Concomitant]
     Active Substance: DURVALUMAB
     Dosage: 1500 MG, EVERY FOUR WEEKS
     Route: 042
     Dates: start: 20221103, end: 20221103
  31. AMLODIPINE BESYLATE [Concomitant]
     Active Substance: AMLODIPINE BESYLATE
     Indication: Hypertension
     Dosage: 1 DF, DAILY
     Route: 048
     Dates: start: 201709
  32. DEXAMETHASONE [Concomitant]
     Active Substance: DEXAMETHASONE
     Indication: Chemotherapy side effect prophylaxis
     Dosage: 5 CF, UNKNOWN
     Route: 048
     Dates: start: 20220406, end: 20220408
  33. GRABELLA [Concomitant]
     Indication: Prophylaxis
     Dosage: 20 MG, UNKNOWN
     Route: 042
     Dates: start: 20220407, end: 20220407
  34. DEXAMETHASONE SODIUM PHOSPHATE [Concomitant]
     Active Substance: DEXAMETHASONE SODIUM PHOSPHATE
     Indication: Prophylaxis
     Dosage: 5 MG, UNKNOWN
     Route: 042
     Dates: start: 20220407, end: 20220407
  35. GRANULOCYTE COLONY-STIMULATING FACTOR NOS [Concomitant]
     Active Substance: GRANULOCYTE COLONY-STIMULATING FACTOR NOS
     Indication: Prophylaxis
     Dosage: 100 UG/INHAL, DAILY
     Route: 058
     Dates: start: 20220316, end: 20220316
  36. GRANULOCYTE COLONY-STIMULATING FACTOR NOS [Concomitant]
     Active Substance: GRANULOCYTE COLONY-STIMULATING FACTOR NOS
     Dosage: 250 UG/INHAL, DAILY
     Route: 058
     Dates: start: 20220318, end: 20220320
  37. THROMBOPOIETIN [Concomitant]
     Active Substance: THROMBOPOIETIN
     Indication: Platelet count decreased
     Dosage: 15000 U, DAILY
     Route: 058
     Dates: start: 20220324, end: 20220327
  38. PALONOSETRON HYDROCHLORIDE [Concomitant]
     Active Substance: PALONOSETRON HYDROCHLORIDE
     Indication: Prophylaxis
     Dosage: 0.25 MG
     Route: 042
     Dates: start: 20220407, end: 20220407
  39. MIXED NUCLEOSIDE [Concomitant]
     Indication: Myelosuppression
     Dosage: 3 DOSAGE FORM, BID
     Route: 048
     Dates: start: 20220301, end: 20220330
  40. FERROUS SUCCINATE [Concomitant]
     Active Substance: FERROUS SUCCINATE
     Indication: Myelosuppression
     Dosage: 1 DF, BID
     Route: 048
     Dates: start: 20220301
  41. HETROMBOPAG [Concomitant]
     Indication: Myelosuppression
     Dosage: 3 DOSAGE FORM, DAILY
     Route: 048
     Dates: start: 20220301, end: 20220330

REACTIONS (1)
  - Myelosuppression [Recovered/Resolved]

NARRATIVE: CASE EVENT DATE: 20220415
